FAERS Safety Report 4286748-0 (Version None)
Quarter: 2004Q1

REPORT INFORMATION
  Report Type: 
  Country: None (occurrence: None)
  Receive Date: 20040206
  Receipt Date: 20040126
  Transmission Date: 20041129
  Serious: Yes (Other)
  Sender: FDA-Public Use
  Company Number: GB-GLAXOSMITHKLINE-B0321129A

PATIENT
  Age: 37 Year
  Sex: Female
  Weight: 57.27 kg

DRUGS (2)
  1. ZYBAN [Suspect]
     Dosage: 150MG TWICE PER DAY
     Route: 048
     Dates: start: 20010525
  2. AMOXICILLIN [Concomitant]
     Route: 065
     Dates: end: 20010501

REACTIONS (1)
  - CONJUNCTIVAL HAEMORRHAGE [None]
